FAERS Safety Report 21680246 (Version 2)
Quarter: 2022Q4

REPORT INFORMATION
  Report Type: Report from Study
  Country: ES (occurrence: ES)
  Receive Date: 20221205
  Receipt Date: 20221213
  Transmission Date: 20230113
  Serious: Yes (Other)
  Sender: FDA-Public Use
  Company Number: ES-ABBVIE-4218806

PATIENT
  Age: 82 Year
  Sex: Female

DRUGS (4)
  1. CARBIDOPA\LEVODOPA [Suspect]
     Active Substance: CARBIDOPA\LEVODOPA
     Indication: Parkinson^s disease
     Route: 050
     Dates: start: 20190711
  2. CARBIDOPA\LEVODOPA [Suspect]
     Active Substance: CARBIDOPA\LEVODOPA
  3. CLONAZEPAM [Concomitant]
     Active Substance: CLONAZEPAM
     Indication: Nightmare
     Dosage: 0.5
     Route: 048
     Dates: start: 20221103, end: 20221129
  4. CLONAZEPAM [Concomitant]
     Active Substance: CLONAZEPAM
     Indication: Nightmare
     Dosage: 0.5
     Route: 048
     Dates: start: 20221103, end: 20221129

REACTIONS (4)
  - Neoplasm [Unknown]
  - Hallucination [Recovered/Resolved]
  - Freezing phenomenon [Recovered/Resolved]
  - Nightmare [Recovered/Resolved]

NARRATIVE: CASE EVENT DATE: 20220901
